FAERS Safety Report 7297494-3 (Version None)
Quarter: 2011Q1

REPORT INFORMATION
  Report Type: 
  Country: None (occurrence: None)
  Receive Date: 20110216
  Receipt Date: 20110202
  Transmission Date: 20110831
  Serious: Yes (Death, Other)
  Sender: FDA-Public Use
  Company Number: JP-CELGENEUS-087-21880-10112826

PATIENT
  Sex: Male

DRUGS (4)
  1. LENADEX [Suspect]
     Indication: MULTIPLE MYELOMA
     Route: 048
     Dates: start: 20100910, end: 20100928
  2. LENADEX [Suspect]
     Route: 048
     Dates: start: 20101001, end: 20101004
  3. REVLIMID [Suspect]
     Route: 048
     Dates: start: 20101001, end: 20101008
  4. REVLIMID [Suspect]
     Indication: MULTIPLE MYELOMA
     Route: 048
     Dates: start: 20100910, end: 20100923

REACTIONS (4)
  - NEUTROPENIA [None]
  - MULTIPLE MYELOMA [None]
  - PNEUMONIA ASPIRATION [None]
  - THROMBOCYTOPENIA [None]
